FAERS Safety Report 6157899-0 (Version None)
Quarter: 2009Q2

REPORT INFORMATION
  Report Type: 
  Country: None (occurrence: None)
  Receive Date: 20090417
  Receipt Date: 20070321
  Transmission Date: 20091009
  Serious: Yes (Death, Hospitalization)
  Sender: FDA-Public Use
  Company Number: US-ASTRAZENECA-2006UW03000

PATIENT
  Age: 485 Month
  Sex: Male
  Weight: 138.3 kg

DRUGS (11)
  1. SEROQUEL [Suspect]
     Indication: INSOMNIA
     Dosage: 200-900 MG
     Route: 048
     Dates: start: 20040101
  2. SEROQUEL [Suspect]
     Indication: MENTAL DISORDER
     Dosage: 200-900 MG
     Route: 048
     Dates: start: 20040101
  3. CLOZARIL [Concomitant]
     Dates: start: 20061001
  4. ZOLOFT [Concomitant]
     Dates: start: 20060701
  5. LEXAPRO [Concomitant]
  6. RISPERIDONE [Concomitant]
  7. KLONOPIN [Concomitant]
  8. VISTARIL [Concomitant]
  9. REMERON [Concomitant]
  10. DEPAKOTE [Concomitant]
  11. VALIUM [Concomitant]

REACTIONS (18)
  - ANORECTAL CELLULITIS [None]
  - ANXIETY [None]
  - ASTHMA [None]
  - CARDIAC DISORDER [None]
  - CHEST PAIN [None]
  - DIABETES MELLITUS [None]
  - DYSPNOEA [None]
  - HALLUCINATION, VISUAL [None]
  - HYPERLIPIDAEMIA [None]
  - INSOMNIA [None]
  - MAJOR DEPRESSION [None]
  - OVERDOSE [None]
  - PANIC DISORDER WITH AGORAPHOBIA [None]
  - RASH [None]
  - RETINOPATHY HYPERTENSIVE [None]
  - SKIN LESION [None]
  - SLEEP APNOEA SYNDROME [None]
  - WEIGHT INCREASED [None]
